FAERS Safety Report 15430529 (Version 2)
Quarter: 2018Q4

REPORT INFORMATION
  Report Type: Spontaneous
  Country: US (occurrence: US)
  Receive Date: 20180926
  Receipt Date: 20181026
  Transmission Date: 20190204
  Serious: Yes (Hospitalization)
  Sender: FDA-Public Use
  Company Number: US-DSJP-DSU-2017-141442

PATIENT

DRUGS (1)
  1. BENICAR [Suspect]
     Active Substance: OLMESARTAN MEDOXOMIL
     Indication: HYPERTENSION
     Dosage: 40 MG, QD
     Route: 048
     Dates: start: 20140120, end: 20170119

REACTIONS (8)
  - Syncope [Unknown]
  - Acute kidney injury [Recovered/Resolved]
  - Gastrooesophageal reflux disease [Recovered/Resolved]
  - Hiatus hernia [Unknown]
  - Large intestine polyp [Recovered/Resolved]
  - Sprue-like enteropathy [Recovering/Resolving]
  - Haemorrhoids [Unknown]
  - Hypotension [Unknown]

NARRATIVE: CASE EVENT DATE: 2014
